FAERS Safety Report 5572774-8 (Version None)
Quarter: 2007Q4

REPORT INFORMATION
  Report Type: 
  Country: None (occurrence: None)
  Receive Date: 20071223
  Receipt Date: 20071212
  Transmission Date: 20080405
  Serious: Yes (Other)
  Sender: FDA-Public Use
  Company Number: PHBS2007JP20613

PATIENT
  Age: 63 Year
  Sex: Female

DRUGS (3)
  1. TEGRETOL [Suspect]
     Indication: EPILEPSY
     Dosage: 1200 MG/DAY
     Route: 048
  2. PHENYTOIN [Concomitant]
     Indication: EPILEPSY
     Dosage: 225 MG/DAY
     Route: 048
  3. ZONISAMIDE [Concomitant]
     Indication: EPILEPSY
     Dosage: 200 MG/DAY
     Route: 048

REACTIONS (5)
  - ASTERIXIS [None]
  - DYSKINESIA [None]
  - FALL [None]
  - GAIT DISTURBANCE [None]
  - MUSCULAR WEAKNESS [None]
